FAERS Safety Report 9390022 (Version 1)
Quarter: 2013Q3

REPORT INFORMATION
  Report Type: Spontaneous
  Country: US (occurrence: US)
  Receive Date: 20130708
  Receipt Date: 20130708
  Transmission Date: 20140515
  Serious: No
  Sender: FDA-Public Use
  Company Number: US-AMGEN-USASP2013045109

PATIENT
  Age: 58 Year
  Sex: Female

DRUGS (5)
  1. ENBREL [Suspect]
     Indication: RHEUMATOID ARTHRITIS
     Dosage: 50 MG, QWK
     Route: 065
     Dates: start: 2013
  2. NAPROXEN [Concomitant]
     Dosage: UNK
  3. SALAGEN [Concomitant]
     Dosage: UNK
  4. IMITREX                            /01044801/ [Concomitant]
     Dosage: UNK
  5. FLEXERIL                           /00428402/ [Concomitant]
     Dosage: UNK

REACTIONS (3)
  - Discomfort [Unknown]
  - Chest discomfort [Unknown]
  - Chest pain [Unknown]
